FAERS Safety Report 9562576 (Version 2)
Quarter: 2013Q3

REPORT INFORMATION
  Report Type: Spontaneous
  Country: BE (occurrence: BE)
  Receive Date: 20130927
  Receipt Date: 20130927
  Transmission Date: 20140515
  Serious: Yes (Hospitalization, Other)
  Sender: FDA-Public Use
  Company Number: BE-ASTRAZENECA-2013SE62930

PATIENT
  Age: 77 Year
  Sex: Female
  Weight: 72 kg

DRUGS (6)
  1. BRILIQUE [Suspect]
     Route: 048
     Dates: start: 20120910, end: 201308
  2. GLUCOPHAGE [Concomitant]
  3. ZOCOR [Concomitant]
  4. CO-BISOPROLOL [Concomitant]
     Dosage: 10/25 MG, UNKNOWN FREQUENCY
  5. COVERSYL [Concomitant]
  6. CARDIOASPIRINE [Concomitant]

REACTIONS (2)
  - Abnormal loss of weight [Recovering/Resolving]
  - Asthenia [Unknown]
